FAERS Safety Report 5763546-X (Version None)
Quarter: 2008Q2

REPORT INFORMATION
  Report Type: 
  Country: None (occurrence: None)
  Receive Date: 20080610
  Receipt Date: 20080605
  Transmission Date: 20081010
  Serious: Yes (Life-Threatening)
  Sender: FDA-Public Use
  Company Number: ES-JNJFOC-20080601498

PATIENT
  Age: 44 Year
  Sex: Male

DRUGS (9)
  1. PREZISTA [Suspect]
     Indication: HIV INFECTION
     Route: 048
  2. MARAVIROC [Suspect]
     Indication: HIV INFECTION
     Route: 048
  3. MK-0518 [Suspect]
     Indication: HIV INFECTION
     Route: 048
  4. RITONAVIR [Suspect]
     Indication: HIV INFECTION
     Route: 048
  5. CLONAZEPAM [Concomitant]
  6. FOLINIC ACID [Concomitant]
  7. GABAPENTIN [Concomitant]
  8. MORPHINE SO4 [Concomitant]
  9. OMEPRAZOLE [Concomitant]

REACTIONS (1)
  - HEPATIC FAILURE [None]
